FAERS Safety Report 7845792-4 (Version None)
Quarter: 2011Q4

REPORT INFORMATION
  Report Type: 
  Country: None (occurrence: None)
  Receive Date: 20111025
  Receipt Date: 20111012
  Transmission Date: 20120403
  Serious: Yes (Other)
  Sender: FDA-Public Use
  Company Number: IN-MYLANLABS-2011S1021606

PATIENT
  Age: 25 Year
  Sex: Male

DRUGS (11)
  1. LORAZEPAM [Concomitant]
     Indication: PREMEDICATION
     Dosage: 1MG THE NIGHT BEFORE AND THE MORNING OF SURGERY
     Route: 048
  2. TACROLIMUS [Suspect]
     Indication: IMMUNOSUPPRESSION
     Dosage: 0.2 MG/KG/DAY IN TWO DIVIDED DOSES
     Route: 048
  3. PREDNISONE [Concomitant]
     Indication: IMMUNOSUPPRESSION
     Dosage: 30 MG/DAY
     Route: 048
  4. FENTANYL-100 [Concomitant]
     Indication: INDUCTION OF ANAESTHESIA
     Dosage: 100 MICROG
     Route: 042
  5. METOCLOPRAMIDE [Concomitant]
     Indication: PROPHYLAXIS
     Dosage: 10MG THE NIGHT BEFORE AND THE MORNING OF SURGERY
     Route: 048
  6. BUPIVACAINE HCL [Concomitant]
     Dosage: 6ML OF 0.125% POSTOPERATIVELY; CONTINUOUS INFUSION
     Route: 008
  7. ATRACURIUM BESYLATE [Concomitant]
     Indication: NEUROMUSCULAR BLOCKADE
     Dosage: 25MG
     Route: 042
  8. BUPIVACAINE HCL [Concomitant]
     Indication: ANALGESIC THERAPY
     Dosage: 8ML OF 0.25% INTRAOPERATIVELY
     Route: 008
  9. OMEPRAZOLE [Concomitant]
     Indication: PROPHYLAXIS
     Dosage: 40MG THE NIGHT BEFORE AND THE MORNING OF SURGERY
     Route: 048
  10. ISOFLURANE/NITROUS OXIDE/OXYGEN [Concomitant]
     Indication: MAINTENANCE OF ANAESTHESIA
     Dosage: ISOFLURANE 0.8-1.0% IN OXYGEN/NITROUS OXIDE (30:70)
     Route: 065
  11. THIOPENTAL SODIUM [Concomitant]
     Indication: INDUCTION OF ANAESTHESIA
     Dosage: 250MG
     Route: 042

REACTIONS (1)
  - PERONEAL NERVE PALSY [None]
